FAERS Safety Report 8252529-6 (Version None)
Quarter: 2012Q2

REPORT INFORMATION
  Report Type: 
  Country: None (occurrence: None)
  Receive Date: 20120402
  Receipt Date: 20111102
  Transmission Date: 20120825
  Serious: No
  Sender: FDA-Public Use
  Company Number: US-ABBOTT-11P-163-0871051-00

PATIENT
  Sex: Male

DRUGS (3)
  1. BLOOD PRESSURE MEDICATION [Concomitant]
     Indication: HYPERTENSION
  2. SIMVASTATIN [Concomitant]
     Indication: PRODUCT USED FOR UNKNOWN INDICATION
  3. ANDROGEL [Suspect]
     Indication: BLOOD TESTOSTERONE DECREASED
     Dates: start: 20110101, end: 20110101

REACTIONS (1)
  - ABDOMINAL PAIN UPPER [None]
